FAERS Safety Report 14925828 (Version 5)
Quarter: 2018Q3

REPORT INFORMATION
  Report Type: Spontaneous
  Country: US (occurrence: US)
  Receive Date: 20180522
  Receipt Date: 20180914
  Transmission Date: 20181010
  Serious: Yes (Hospitalization, Other)
  Sender: FDA-Public Use
  Company Number: US-ACTELION-A-NJ2018-172236

PATIENT
  Age: 40 Year
  Sex: Male

DRUGS (21)
  1. ENULOSE [Concomitant]
     Active Substance: LACTULOSE
     Dosage: 30 ML, QD
     Route: 048
  2. PROTONIX [Concomitant]
     Active Substance: PANTOPRAZOLE SODIUM
     Dosage: 40 MG, QAM
     Route: 048
  3. MIDODRINE [Concomitant]
     Active Substance: MIDODRINE
  4. ZINC SULFATE [Concomitant]
     Active Substance: ZINC SULFATE\ZINC SULFATE ANHYDROUS
     Dosage: 220 MG, QD
     Route: 048
  5. FERROUS SULFATE. [Concomitant]
     Active Substance: FERROUS SULFATE
  6. PROAMATINE [Concomitant]
     Active Substance: MIDODRINE HYDROCHLORIDE
     Dosage: 10 MG, Q6HRS
     Route: 048
  7. ELIQUIS [Concomitant]
     Active Substance: APIXABAN
  8. SYNTHROID [Concomitant]
     Active Substance: LEVOTHYROXINE SODIUM
     Route: 048
  9. AUGMENTIN [Concomitant]
     Active Substance: AMOXICILLIN\CLAVULANATE POTASSIUM
  10. PANTOPRAZOLE [Concomitant]
     Active Substance: PANTOPRAZOLE
  11. PROAIR HFA [Concomitant]
     Active Substance: ALBUTEROL SULFATE
     Dosage: 1 TO 2 PUFFS,PO, Q 4 TO 6HRS PRN
     Route: 048
  12. CIALIS [Concomitant]
     Active Substance: TADALAFIL
  13. SILDENAFIL. [Concomitant]
     Active Substance: SILDENAFIL
  14. OPSUMIT [Suspect]
     Active Substance: MACITENTAN
     Indication: PULMONARY HYPERTENSION
     Dosage: 10 MG, QD
     Route: 048
     Dates: start: 201711
  15. CIPRO [Concomitant]
     Active Substance: CIPROFLOXACIN HYDROCHLORIDE
     Dosage: 250 MG, QD
     Route: 048
  16. BACLOFEN. [Concomitant]
     Active Substance: BACLOFEN
  17. MULTIVITAMIN [Concomitant]
     Active Substance: VITAMINS
     Dosage: UNK, QD
     Route: 048
  18. XIFAXAN [Concomitant]
     Active Substance: RIFAXIMIN
     Dosage: 550 MG, BID
     Route: 048
  19. SPIRONOLACTONE. [Concomitant]
     Active Substance: SPIRONOLACTONE
  20. CALCIUM ACETATE. [Concomitant]
     Active Substance: CALCIUM ACETATE
  21. TRAMADOL HCL [Concomitant]
     Active Substance: TRAMADOL HYDROCHLORIDE

REACTIONS (39)
  - Cirrhosis alcoholic [Recovered/Resolved]
  - Haematemesis [Recovering/Resolving]
  - Fluid overload [Unknown]
  - Pericardial effusion [Unknown]
  - Chronic hepatic failure [Unknown]
  - Condition aggravated [Recovering/Resolving]
  - Syncope [Recovering/Resolving]
  - Nausea [Not Recovered/Not Resolved]
  - Aspartate aminotransferase increased [Unknown]
  - Oesophageal variceal ligation [Unknown]
  - Coagulopathy [Unknown]
  - Portal vein thrombosis [Unknown]
  - Blood bilirubin increased [Unknown]
  - Thromboembolectomy [Unknown]
  - Haemodialysis [Recovering/Resolving]
  - Liver transplant [Unknown]
  - Portal hypertension [Unknown]
  - Splenomegaly [Unknown]
  - Acute kidney injury [Recovering/Resolving]
  - Haemoglobin decreased [Unknown]
  - Ascites [Unknown]
  - Tricuspid valve incompetence [Unknown]
  - Abdominal pain [Unknown]
  - Gastric polyps [Unknown]
  - Dizziness [Not Recovered/Not Resolved]
  - Memory impairment [Not Recovered/Not Resolved]
  - Pancytopenia [Unknown]
  - Muscle spasms [Not Recovered/Not Resolved]
  - Respiratory distress [Unknown]
  - Transfusion [Unknown]
  - Portal shunt procedure [Unknown]
  - Hepatic encephalopathy [Recovering/Resolving]
  - Hypersplenism [Unknown]
  - Cardiac arrest [Recovering/Resolving]
  - Epistaxis [Recovered/Resolved]
  - Anaemia [Unknown]
  - Nodule [Unknown]
  - Hypotension [Unknown]
  - Confusional state [Not Recovered/Not Resolved]

NARRATIVE: CASE EVENT DATE: 20180516
